FAERS Safety Report 9191764 (Version 1)
Quarter: 2013Q1

REPORT INFORMATION
  Report Type: Spontaneous
  Country: US (occurrence: US)
  Receive Date: 20130327
  Receipt Date: 20130327
  Transmission Date: 20140127
  Serious: No
  Sender: FDA-Public Use
  Company Number: US-009507513-1303USA010157

PATIENT
  Sex: 0

DRUGS (2)
  1. INTRONA [Suspect]
     Indication: SQUAMOUS CELL CARCINOMA
     Dosage: UNK 10 MILLION INTERNATIONAL UNITS PER MILLILITER
  2. INTRONA [Suspect]
     Dosage: TOPICAL SOLUTION 1 ML OF 1 MIU RECONSTITUTED WITH 9 ML OF DISTILLED STERILE WATER

REACTIONS (9)
  - Eye pain [Unknown]
  - Eye irritation [Unknown]
  - Conjunctival hyperaemia [Unknown]
  - Conjunctival follicles [Unknown]
  - Punctate keratitis [Unknown]
  - Influenza like illness [Unknown]
  - Therapeutic response unexpected [Unknown]
  - Off label use [Unknown]
  - Incorrect route of drug administration [Unknown]
